FAERS Safety Report 11375948 (Version 1)
Quarter: 2015Q3

REPORT INFORMATION
  Report Type: Spontaneous
  Country: US (occurrence: US)
  Receive Date: 20150813
  Receipt Date: 20150813
  Transmission Date: 20151125
  Serious: Yes (Other)
  Sender: FDA-Public Use
  Company Number: US-009507513-1508USA004855

PATIENT
  Sex: Male

DRUGS (4)
  1. SINGULAIR [Suspect]
     Active Substance: MONTELUKAST SODIUM
     Indication: ASTHMA
     Dosage: 10 MG, UNK
     Route: 048
  2. ADVAIR HFA [Suspect]
     Active Substance: FLUTICASONE PROPIONATE\SALMETEROL XINAFOATE
     Indication: ASTHMA
     Dosage: UNK
  3. SERETIDE [Suspect]
     Active Substance: FLUTICASONE FUROATE\SALMETEROL XINAFOATE
     Indication: ASTHMA
     Dosage: UNK
  4. PROAIR HFA [Suspect]
     Active Substance: ALBUTEROL SULFATE
     Indication: ASTHMA
     Dosage: 90 MICROGRAM, UNK

REACTIONS (57)
  - Anaemic hypoxia [Unknown]
  - Mental disorder [Unknown]
  - Blood sodium decreased [Unknown]
  - Hypoaesthesia [Unknown]
  - Dysphagia [Unknown]
  - Pain in extremity [Unknown]
  - Pulmonary pain [Unknown]
  - Dehydration [Unknown]
  - Blood potassium decreased [Unknown]
  - Gastrooesophageal reflux disease [Unknown]
  - Myalgia [Unknown]
  - Osteogenesis imperfecta [Unknown]
  - Arrhythmia [Unknown]
  - Pain [Unknown]
  - Bone loss [Unknown]
  - General physical health deterioration [Unknown]
  - Emotional distress [Unknown]
  - Alopecia [Unknown]
  - Paralysis [Unknown]
  - Cyanosis [Unknown]
  - Post-traumatic stress disorder [Unknown]
  - Depression [Unknown]
  - Decreased appetite [Unknown]
  - Weight decreased [Unknown]
  - Peripheral swelling [Unknown]
  - Muscle atrophy [Unknown]
  - Lung disorder [Unknown]
  - Dyspnoea [Unknown]
  - Malaise [Unknown]
  - Cough [Unknown]
  - Insomnia [Unknown]
  - Asthenia [Unknown]
  - Pharyngeal disorder [Unknown]
  - Stress [Unknown]
  - Respiratory failure [Unknown]
  - Suicidal ideation [Unknown]
  - Angina pectoris [Unknown]
  - Choking sensation [Unknown]
  - Chest pain [Unknown]
  - Apnoea [Unknown]
  - Total lung capacity decreased [Unknown]
  - Syncope [Unknown]
  - Poverty [Unknown]
  - Muscular weakness [Unknown]
  - Fatigue [Unknown]
  - Drug ineffective [Unknown]
  - Drug dose omission [Unknown]
  - Starvation [Unknown]
  - Hunger [Unknown]
  - Hypotension [Unknown]
  - Musculoskeletal chest pain [Unknown]
  - Psychiatric symptom [Unknown]
  - Asthma [Unknown]
  - Inability to afford medication [Unknown]
  - Toothache [Unknown]
  - Arthralgia [Unknown]
  - Muscle spasms [Unknown]
